FAERS Safety Report 9017378 (Version 1)
Quarter: 2013Q1

REPORT INFORMATION
  Report Type: Spontaneous
  Country: US (occurrence: US)
  Receive Date: 20130117
  Receipt Date: 20130117
  Transmission Date: 20140127
  Serious: No
  Sender: FDA-Public Use
  Company Number: US-PFIZER INC-2013020112

PATIENT
  Age: 55 Year
  Sex: Male
  Weight: 120 kg

DRUGS (1)
  1. CHANTIX [Suspect]
     Indication: SMOKING CESSATION THERAPY
     Dosage: UNK
     Dates: start: 20060114

REACTIONS (2)
  - Nausea [Recovered/Resolved]
  - Abnormal dreams [Recovered/Resolved]
